FAERS Safety Report 8477074-4 (Version None)
Quarter: 2012Q2

REPORT INFORMATION
  Report Type: 
  Country: None (occurrence: None)
  Receive Date: 20120629
  Receipt Date: 20120625
  Transmission Date: 20120825
  Serious: No
  Sender: FDA-Public Use
  Company Number: US-PFIZER INC-2012152881

PATIENT
  Sex: Male
  Weight: 77.098 kg

DRUGS (6)
  1. VIAGRA [Suspect]
     Indication: ERECTILE DYSFUNCTION
     Dosage: 50 MG, AS NEEDED
     Route: 048
  2. VICODIN [Concomitant]
     Indication: PAIN
     Dosage: UNK
  3. VICODIN [Concomitant]
     Indication: ARTHRITIS
  4. VIAGRA [Suspect]
     Dosage: 100 MG, AS NEEDED
     Route: 048
  5. VIAGRA [Suspect]
     Dosage: 100 MG (TWO TABLETS OF 50MG) AS NEEDED
     Route: 048
  6. METOPROLOL [Concomitant]
     Indication: HYPERTENSION
     Dosage: UNK

REACTIONS (3)
  - BLOOD CHOLESTEROL INCREASED [None]
  - DRUG INEFFECTIVE [None]
  - DEPRESSED MOOD [None]
